FAERS Safety Report 8556576-6 (Version None)
Quarter: 2012Q3

REPORT INFORMATION
  Report Type: 
  Country: None (occurrence: None)
  Receive Date: 20120801
  Receipt Date: 20120724
  Transmission Date: 20120928
  Serious: Yes (Hospitalization)
  Sender: FDA-Public Use
  Company Number: US-BAYER-2012-046802

PATIENT
  Age: 22 Year
  Sex: Female

DRUGS (2)
  1. DROSPIRENONE AND ETHINYL ESTRADIOL [Suspect]
     Dosage: UNK
     Dates: start: 20090801, end: 20091001
  2. YAZ [Suspect]
     Dosage: UNK

REACTIONS (6)
  - GENERAL PHYSICAL HEALTH DETERIORATION [None]
  - INJURY [None]
  - EMOTIONAL DISTRESS [None]
  - PULMONARY EMBOLISM [None]
  - ANXIETY [None]
  - PAIN [None]
